FAERS Safety Report 8560629-6 (Version None)
Quarter: 2012Q3

REPORT INFORMATION
  Report Type: 
  Country: None (occurrence: None)
  Receive Date: 20120802
  Receipt Date: 20120725
  Transmission Date: 20120928
  Serious: Yes (Hospitalization)
  Sender: FDA-Public Use
  Company Number: US-MPIJNJ-2012-05217

PATIENT
  Sex: Female

DRUGS (2)
  1. VELCADE [Suspect]
     Indication: PRODUCT USED FOR UNKNOWN INDICATION
     Dosage: 1.3 MG/M2, UNK
     Route: 042
  2. VELCADE [Suspect]
     Dosage: 1.0 MG/M2, UNK
     Route: 042

REACTIONS (4)
  - ABDOMINAL RIGIDITY [None]
  - HEPATIC FAILURE [None]
  - HYPOAESTHESIA [None]
  - DYSPNOEA [None]
